FAERS Safety Report 11232309 (Version 1)
Quarter: 2015Q3

REPORT INFORMATION
  Report Type: Spontaneous
  Country: US (occurrence: US)
  Receive Date: 20150701
  Receipt Date: 20150701
  Transmission Date: 20151125
  Serious: Yes (Other)
  Sender: FDA-Public Use
  Company Number: US-TEVA-574531USA

PATIENT
  Sex: Female

DRUGS (1)
  1. GLIPIZIDE W/METFORMIN [Suspect]
     Active Substance: GLIPIZIDE\METFORMIN HYDROCHLORIDE
     Route: 065

REACTIONS (1)
  - Renal neoplasm [Unknown]
